FAERS Safety Report 8911490 (Version 1)
Quarter: 2012Q4

REPORT INFORMATION
  Report Type: 
  Country: US (occurrence: US)
  Receive Date: 20121115
  Receipt Date: 20121115
  Transmission Date: 20130627
  Serious: No
  Sender: FDA-Public Use
  Company Number: US-009507513-1211USA002196

PATIENT
  Age: 19 Year
  Sex: Female
  Weight: 61.68 kg

DRUGS (3)
  1. NEXPLANON [Suspect]
     Indication: CONTRACEPTION
     Dosage: 1x68 mg rod up to 3 years
     Route: 059
     Dates: start: 20120831
  2. IBUPROFEN [Concomitant]
     Indication: HEADACHE
     Dosage: UNK, prn
  3. VITAMINS (UNSPECIFIED) [Concomitant]

REACTIONS (6)
  - Mood swings [Unknown]
  - Panic attack [Unknown]
  - Headache [Unknown]
  - Acne [Unknown]
  - Weight fluctuation [Unknown]
  - Implant site pain [Unknown]
